FAERS Safety Report 8139322-X (Version None)
Quarter: 2012Q1

REPORT INFORMATION
  Report Type: 
  Country: None (occurrence: None)
  Receive Date: 20120215
  Receipt Date: 20120209
  Transmission Date: 20120608
  Serious: Yes (Other)
  Sender: FDA-Public Use
  Company Number: TR-PFIZER INC-2012036467

PATIENT
  Age: 18 Month
  Sex: Male
  Weight: 9.2 kg

DRUGS (1)
  1. ANTIHEMOPHILIC FACTOR NOS [Suspect]
     Indication: FACTOR VIII DEFICIENCY
     Dosage: 500 UNK, UNK
     Route: 042
     Dates: start: 20120109, end: 20120112

REACTIONS (1)
  - FACTOR VIII INHIBITION [None]
